FAERS Safety Report 9501149 (Version 2)
Quarter: 2013Q3

REPORT INFORMATION
  Report Type: Spontaneous
  Country: US (occurrence: US)
  Receive Date: 20130905
  Receipt Date: 20130923
  Transmission Date: 20140515
  Serious: Yes (Other)
  Sender: FDA-Public Use
  Company Number: US-UCBSA-096326

PATIENT
  Age: 66 Year
  Sex: Female

DRUGS (2)
  1. VIMPAT [Suspect]
     Indication: CONVULSION
     Dates: start: 2013
  2. TEGRETOL [Concomitant]
     Dosage: 100 MG IN THE MORNING AND 200MG IN THE NIGHT

REACTIONS (3)
  - VIIth nerve paralysis [Recovering/Resolving]
  - Swelling [Recovered/Resolved]
  - Pain [Not Recovered/Not Resolved]
